FAERS Safety Report 24142324 (Version 2)
Quarter: 2024Q3

REPORT INFORMATION
  Report Type: Spontaneous
  Country: JP (occurrence: None)
  Receive Date: 20240726
  Receipt Date: 20240802
  Transmission Date: 20241016
  Serious: Yes (Other)
  Sender: ASTRAZENECA
  Company Number: 2024A167079

PATIENT
  Age: 80 Year
  Sex: Male

DRUGS (2)
  1. DURVALUMAB [Suspect]
     Active Substance: DURVALUMAB
     Indication: Adenocarcinoma
     Route: 042
  2. CARBOPLATIN [Concomitant]
     Active Substance: CARBOPLATIN
     Dosage: 30 MG/M2 ONCE WEEKLY, FOR A TOTAL OF 20 WEEKS

REACTIONS (3)
  - Malignant neoplasm progression [Unknown]
  - K-ras gene mutation [Unknown]
  - Dyspnoea [Unknown]
